FAERS Safety Report 24292158 (Version 1)
Quarter: 2024Q3

REPORT INFORMATION
  Report Type: Spontaneous
  Country: US (occurrence: None)
  Receive Date: 20240906
  Receipt Date: 20240906
  Transmission Date: 20241017
  Serious: No
  Sender: DOMPE FARMACEUTICI
  Company Number: US-FARMAPROD-202307-2096

PATIENT
  Sex: Male

DRUGS (7)
  1. OXERVATE [Suspect]
     Active Substance: CENEGERMIN-BKBJ
     Indication: Neurotrophic keratopathy
     Route: 047
     Dates: start: 20230606
  2. LATANOPROST [Concomitant]
     Active Substance: LATANOPROST
  3. ASPIRIN [Concomitant]
     Active Substance: ASPIRIN
  4. VITAMIN D2 [Concomitant]
     Active Substance: ERGOCALCIFEROL
  5. ALLOPURINOL [Concomitant]
     Active Substance: ALLOPURINOL
  6. FUROSEMIDE [Concomitant]
     Active Substance: FUROSEMIDE
  7. VYNDAMAX [Concomitant]
     Active Substance: TAFAMIDIS

REACTIONS (2)
  - Eye pain [Unknown]
  - Rash pruritic [Unknown]
